FAERS Safety Report 17760922 (Version 2)
Quarter: 2020Q4

REPORT INFORMATION
  Report Type: Spontaneous
  Country: US (occurrence: US)
  Receive Date: 20200508
  Receipt Date: 20201216
  Transmission Date: 20210113
  Serious: No
  Sender: FDA-Public Use
  Company Number: US-PFIZER INC-2020116712

PATIENT
  Age: 55 Year
  Sex: Female

DRUGS (1)
  1. FLECTOR [Suspect]
     Active Substance: DICLOFENAC EPOLAMINE
     Indication: PAIN
     Dosage: UNK, DAILY (APPLY TO RIGHT KNEE)

REACTIONS (3)
  - Product use in unapproved indication [Unknown]
  - Abdominal pain upper [Unknown]
  - Off label use [Unknown]
